APPROVED DRUG PRODUCT: PHENYTOIN
Active Ingredient: PHENYTOIN
Strength: 125MG/5ML
Dosage Form/Route: SUSPENSION;ORAL
Application: A040521 | Product #001 | TE Code: AB
Applicant: TARO PHARMACEUTICAL INDUSTRIES LTD
Approved: Mar 8, 2004 | RLD: No | RS: No | Type: RX